FAERS Safety Report 23631088 (Version 1)
Quarter: 2024Q1

REPORT INFORMATION
  Report Type: Spontaneous
  Country: EG (occurrence: EG)
  Receive Date: 20240314
  Receipt Date: 20240314
  Transmission Date: 20240410
  Serious: Yes (Other)
  Sender: FDA-Public Use
  Company Number: EG-HIKMA PHARMACEUTICALS USA INC.-EG-H14001-24-01961

PATIENT
  Age: 60 Year
  Sex: Female
  Weight: 55 kg

DRUGS (4)
  1. CYCLOPHOSPHAMIDE [Suspect]
     Active Substance: CYCLOPHOSPHAMIDE
     Indication: Breast cancer
     Dosage: 900 MILLIGRAM, 3W
     Route: 041
  2. CYCLOPHOSPHAMIDE [Suspect]
     Active Substance: CYCLOPHOSPHAMIDE
     Dosage: 900 MILLIGRAM, 3W, DAY 1, CYCLE 3
     Route: 041
     Dates: start: 20231019
  3. PACLITAXEL [Suspect]
     Active Substance: PACLITAXEL
     Indication: Breast cancer
     Dosage: 120 MILLIGRAM, WEEKLY
     Route: 041
  4. PACLITAXEL [Suspect]
     Active Substance: PACLITAXEL
     Dosage: 120 MILLIGRAM, WEEKLY, DAY 1, CYCLE 3
     Route: 041
     Dates: start: 20231019

REACTIONS (6)
  - White blood cell count decreased [Unknown]
  - Neutropenia [Unknown]
  - Tremor [Unknown]
  - Hyperpyrexia [Unknown]
  - Febrile neutropenia [Unknown]
  - Pruritus [Unknown]

NARRATIVE: CASE EVENT DATE: 20231019
